FAERS Safety Report 13132952 (Version 1)
Quarter: 2017Q1

REPORT INFORMATION
  Report Type: Spontaneous
  Country: US (occurrence: US)
  Receive Date: 20170120
  Receipt Date: 20170120
  Transmission Date: 20170428
  Serious: No
  Sender: FDA-Public Use
  Company Number: US-CELGENEUS-USA-2017013717

PATIENT
  Age: 73 Year
  Sex: Female
  Weight: 46.76 kg

DRUGS (101)
  1. FUROSEMIDE. [Concomitant]
     Active Substance: FUROSEMIDE
     Indication: PRODUCT USED FOR UNKNOWN INDICATION
     Route: 048
  2. FUROSEMIDE. [Concomitant]
     Active Substance: FUROSEMIDE
     Route: 048
  3. LORAZEPAM. [Concomitant]
     Active Substance: LORAZEPAM
     Route: 048
  4. LYRICA [Concomitant]
     Active Substance: PREGABALIN
     Route: 048
  5. ASPIRIN. [Concomitant]
     Active Substance: ASPIRIN
     Route: 048
  6. URSODIOL. [Concomitant]
     Active Substance: URSODIOL
     Route: 048
  7. URSODIOL. [Concomitant]
     Active Substance: URSODIOL
     Route: 048
  8. URSODIOL. [Concomitant]
     Active Substance: URSODIOL
     Route: 048
  9. QUINAPRIL. [Concomitant]
     Active Substance: QUINAPRIL
     Route: 048
  10. GLIPIZIDE. [Concomitant]
     Active Substance: GLIPIZIDE
     Route: 048
  11. METFORMIN [Concomitant]
     Active Substance: METFORMIN HYDROCHLORIDE
     Route: 048
  12. METFORMIN [Concomitant]
     Active Substance: METFORMIN HYDROCHLORIDE
     Route: 048
  13. FUROSEMIDE. [Concomitant]
     Active Substance: FUROSEMIDE
     Route: 048
  14. LYRICA [Concomitant]
     Active Substance: PREGABALIN
     Route: 048
  15. ASPIRIN. [Concomitant]
     Active Substance: ASPIRIN
     Route: 048
  16. METHYLPREDNISOLONE. [Concomitant]
     Active Substance: METHYLPREDNISOLONE
     Indication: PRODUCT USED FOR UNKNOWN INDICATION
     Route: 048
  17. URSODIOL. [Concomitant]
     Active Substance: URSODIOL
     Route: 048
  18. QUINAPRIL. [Concomitant]
     Active Substance: QUINAPRIL
     Route: 048
  19. GLIPIZIDE. [Concomitant]
     Active Substance: GLIPIZIDE
     Route: 048
  20. METFORMIN [Concomitant]
     Active Substance: METFORMIN HYDROCHLORIDE
     Route: 048
  21. LYRICA [Concomitant]
     Active Substance: PREGABALIN
     Route: 048
  22. ASPIRIN. [Concomitant]
     Active Substance: ASPIRIN
     Route: 048
  23. ASPIRIN. [Concomitant]
     Active Substance: ASPIRIN
     Route: 048
  24. COLCHICINE. [Concomitant]
     Active Substance: COLCHICINE
     Indication: PRODUCT USED FOR UNKNOWN INDICATION
     Route: 048
  25. COLCHICINE. [Concomitant]
     Active Substance: COLCHICINE
     Route: 048
  26. METHYLPREDNISOLONE. [Concomitant]
     Active Substance: METHYLPREDNISOLONE
     Route: 048
  27. URSODIOL. [Concomitant]
     Active Substance: URSODIOL
     Indication: PRODUCT USED FOR UNKNOWN INDICATION
     Route: 048
  28. URSODIOL. [Concomitant]
     Active Substance: URSODIOL
     Route: 048
  29. GLIPIZIDE. [Concomitant]
     Active Substance: GLIPIZIDE
     Indication: PRODUCT USED FOR UNKNOWN INDICATION
     Route: 048
  30. GLIPIZIDE. [Concomitant]
     Active Substance: GLIPIZIDE
     Route: 048
  31. GLIPIZIDE. [Concomitant]
     Active Substance: GLIPIZIDE
     Route: 048
  32. FUROSEMIDE. [Concomitant]
     Active Substance: FUROSEMIDE
     Route: 048
  33. FUROSEMIDE. [Concomitant]
     Active Substance: FUROSEMIDE
     Route: 048
  34. LORAZEPAM. [Concomitant]
     Active Substance: LORAZEPAM
     Route: 048
  35. LYRICA [Concomitant]
     Active Substance: PREGABALIN
     Route: 048
  36. LYRICA [Concomitant]
     Active Substance: PREGABALIN
     Route: 048
  37. METHYLPREDNISOLONE. [Concomitant]
     Active Substance: METHYLPREDNISOLONE
     Route: 048
  38. QUINAPRIL. [Concomitant]
     Active Substance: QUINAPRIL
     Route: 048
  39. QUINAPRIL. [Concomitant]
     Active Substance: QUINAPRIL
     Route: 048
  40. FUROSEMIDE. [Concomitant]
     Active Substance: FUROSEMIDE
     Route: 048
  41. FUROSEMIDE. [Concomitant]
     Active Substance: FUROSEMIDE
     Route: 048
  42. LORAZEPAM. [Concomitant]
     Active Substance: LORAZEPAM
     Route: 048
  43. LORAZEPAM. [Concomitant]
     Active Substance: LORAZEPAM
     Route: 048
  44. LYRICA [Concomitant]
     Active Substance: PREGABALIN
     Route: 048
  45. COLCHICINE. [Concomitant]
     Active Substance: COLCHICINE
     Route: 048
  46. COLCHICINE. [Concomitant]
     Active Substance: COLCHICINE
     Route: 048
  47. COLCHICINE. [Concomitant]
     Active Substance: COLCHICINE
     Route: 048
  48. METHYLPREDNISOLONE. [Concomitant]
     Active Substance: METHYLPREDNISOLONE
     Route: 048
  49. METHYLPREDNISOLONE. [Concomitant]
     Active Substance: METHYLPREDNISOLONE
     Route: 048
  50. QUINAPRIL. [Concomitant]
     Active Substance: QUINAPRIL
     Route: 048
  51. QUINAPRIL. [Concomitant]
     Active Substance: QUINAPRIL
     Route: 048
  52. GLIPIZIDE. [Concomitant]
     Active Substance: GLIPIZIDE
     Route: 048
  53. METFORMIN [Concomitant]
     Active Substance: METFORMIN HYDROCHLORIDE
     Indication: PRODUCT USED FOR UNKNOWN INDICATION
     Dosage: 1000
     Route: 048
  54. METFORMIN [Concomitant]
     Active Substance: METFORMIN HYDROCHLORIDE
     Route: 048
  55. METFORMIN [Concomitant]
     Active Substance: METFORMIN HYDROCHLORIDE
     Route: 048
  56. METFORMIN [Concomitant]
     Active Substance: METFORMIN HYDROCHLORIDE
     Route: 048
  57. FUROSEMIDE. [Concomitant]
     Active Substance: FUROSEMIDE
     Route: 048
  58. LYRICA [Concomitant]
     Active Substance: PREGABALIN
     Route: 048
  59. LYRICA [Concomitant]
     Active Substance: PREGABALIN
     Route: 048
  60. ASPIRIN. [Concomitant]
     Active Substance: ASPIRIN
     Indication: PRODUCT USED FOR UNKNOWN INDICATION
     Route: 048
  61. COLCHICINE. [Concomitant]
     Active Substance: COLCHICINE
     Route: 048
  62. COLCHICINE. [Concomitant]
     Active Substance: COLCHICINE
     Route: 048
  63. COLCHICINE. [Concomitant]
     Active Substance: COLCHICINE
     Route: 048
  64. URSODIOL. [Concomitant]
     Active Substance: URSODIOL
     Route: 048
  65. QUINAPRIL. [Concomitant]
     Active Substance: QUINAPRIL
     Route: 048
  66. QUINAPRIL. [Concomitant]
     Active Substance: QUINAPRIL
     Route: 048
  67. QUINAPRIL. [Concomitant]
     Active Substance: QUINAPRIL
     Route: 048
  68. GLIPIZIDE. [Concomitant]
     Active Substance: GLIPIZIDE
     Route: 048
  69. METFORMIN [Concomitant]
     Active Substance: METFORMIN HYDROCHLORIDE
     Route: 048
  70. FUROSEMIDE. [Concomitant]
     Active Substance: FUROSEMIDE
     Route: 048
  71. FUROSEMIDE. [Concomitant]
     Active Substance: FUROSEMIDE
     Route: 048
  72. LYRICA [Concomitant]
     Active Substance: PREGABALIN
     Route: 048
  73. REVLIMID [Suspect]
     Active Substance: LENALIDOMIDE
     Indication: PLASMA CELL MYELOMA
     Dosage: 10 MILLIGRAM
     Route: 048
     Dates: start: 20160610
  74. ASPIRIN. [Concomitant]
     Active Substance: ASPIRIN
     Route: 048
  75. ASPIRIN. [Concomitant]
     Active Substance: ASPIRIN
     Route: 048
  76. ASPIRIN. [Concomitant]
     Active Substance: ASPIRIN
     Route: 048
  77. ASPIRIN. [Concomitant]
     Active Substance: ASPIRIN
     Route: 048
  78. COLCHICINE. [Concomitant]
     Active Substance: COLCHICINE
     Route: 048
  79. COLCHICINE. [Concomitant]
     Active Substance: COLCHICINE
     Route: 048
  80. METHYLPREDNISOLONE. [Concomitant]
     Active Substance: METHYLPREDNISOLONE
     Route: 048
  81. METHYLPREDNISOLONE. [Concomitant]
     Active Substance: METHYLPREDNISOLONE
     Route: 048
  82. METHYLPREDNISOLONE. [Concomitant]
     Active Substance: METHYLPREDNISOLONE
     Route: 048
  83. URSODIOL. [Concomitant]
     Active Substance: URSODIOL
     Route: 048
  84. URSODIOL. [Concomitant]
     Active Substance: URSODIOL
     Route: 048
  85. QUINAPRIL. [Concomitant]
     Active Substance: QUINAPRIL
     Indication: PRODUCT USED FOR UNKNOWN INDICATION
     Route: 048
  86. GLIPIZIDE. [Concomitant]
     Active Substance: GLIPIZIDE
     Route: 048
  87. GLIPIZIDE. [Concomitant]
     Active Substance: GLIPIZIDE
     Route: 048
  88. METFORMIN [Concomitant]
     Active Substance: METFORMIN HYDROCHLORIDE
     Route: 048
  89. LORAZEPAM. [Concomitant]
     Active Substance: LORAZEPAM
     Indication: PRODUCT USED FOR UNKNOWN INDICATION
     Route: 048
  90. LORAZEPAM. [Concomitant]
     Active Substance: LORAZEPAM
     Route: 048
  91. LORAZEPAM. [Concomitant]
     Active Substance: LORAZEPAM
     Route: 048
  92. LORAZEPAM. [Concomitant]
     Active Substance: LORAZEPAM
     Route: 048
  93. LORAZEPAM. [Concomitant]
     Active Substance: LORAZEPAM
     Route: 048
  94. LORAZEPAM. [Concomitant]
     Active Substance: LORAZEPAM
     Route: 048
  95. LYRICA [Concomitant]
     Active Substance: PREGABALIN
     Indication: PRODUCT USED FOR UNKNOWN INDICATION
     Route: 048
  96. ASPIRIN. [Concomitant]
     Active Substance: ASPIRIN
     Route: 048
  97. METHYLPREDNISOLONE. [Concomitant]
     Active Substance: METHYLPREDNISOLONE
     Route: 048
  98. METHYLPREDNISOLONE. [Concomitant]
     Active Substance: METHYLPREDNISOLONE
     Route: 048
  99. URSODIOL. [Concomitant]
     Active Substance: URSODIOL
     Route: 048
  100. GLIPIZIDE. [Concomitant]
     Active Substance: GLIPIZIDE
     Route: 048
  101. METFORMIN [Concomitant]
     Active Substance: METFORMIN HYDROCHLORIDE
     Route: 048

REACTIONS (2)
  - Nasopharyngitis [Recovering/Resolving]
  - Dysphonia [Recovering/Resolving]

NARRATIVE: CASE EVENT DATE: 20170106
